FAERS Safety Report 14176977 (Version 1)
Quarter: 2017Q4

REPORT INFORMATION
  Report Type: Spontaneous
  Country: US (occurrence: US)
  Receive Date: 20171110
  Receipt Date: 20171110
  Transmission Date: 20180321
  Serious: Yes (Life-Threatening, Hospitalization, Other)
  Sender: FDA-Public Use
  Company Number: US-APOTEX-2017AP020897

PATIENT
  Age: 14 Year
  Sex: Male

DRUGS (1)
  1. SERTRALINE HYDROCHLORIDE. [Suspect]
     Active Substance: SERTRALINE HYDROCHLORIDE
     Indication: PRODUCT USED FOR UNKNOWN INDICATION
     Dosage: UNK
     Route: 065

REACTIONS (7)
  - Sinus bradycardia [Unknown]
  - Toxicity to various agents [Unknown]
  - Agitation [Unknown]
  - Unresponsive to stimuli [Unknown]
  - Electrocardiogram repolarisation abnormality [Unknown]
  - Pupillary reflex impaired [Unknown]
  - Aggression [Unknown]
